FAERS Safety Report 4850767-3 (Version None)
Quarter: 2005Q4

REPORT INFORMATION
  Report Type: 
  Country: None (occurrence: None)
  Receive Date: 20051212
  Receipt Date: 20051027
  Transmission Date: 20060501
  Serious: Yes (Other)
  Sender: FDA-Public Use
  Company Number: 2005CG01796

PATIENT
  Age: 27615 Day
  Sex: Female
  Weight: 80 kg

DRUGS (6)
  1. NEXIUM [Suspect]
     Indication: GASTROOESOPHAGEAL REFLUX DISEASE
     Route: 048
     Dates: start: 20051022, end: 20051024
  2. DOMPERIDONE [Concomitant]
     Indication: GASTROOESOPHAGEAL REFLUX DISEASE
  3. QUESTRAN [Concomitant]
     Indication: HYPERCHOLESTEROLAEMIA
  4. CREON [Concomitant]
     Indication: STEATORRHOEA
     Route: 048
  5. SOTALOL [Concomitant]
     Indication: TACHYCARDIA
  6. ATARAX [Concomitant]
     Indication: INSOMNIA

REACTIONS (5)
  - ARTHRALGIA [None]
  - BONE PAIN [None]
  - JOINT SWELLING [None]
  - OEDEMA PERIPHERAL [None]
  - PAIN IN EXTREMITY [None]
